FAERS Safety Report 15203043 (Version 2)
Quarter: 2018Q4

REPORT INFORMATION
  Report Type: Spontaneous
  Country: US (occurrence: US)
  Receive Date: 20180726
  Receipt Date: 20181001
  Transmission Date: 20190204
  Serious: Yes (Hospitalization, Other)
  Sender: FDA-Public Use
  Company Number: US-ASTRAZENECA-2018SE86271

PATIENT
  Age: 28557 Day
  Sex: Male

DRUGS (16)
  1. CRESTOR [Suspect]
     Active Substance: ROSUVASTATIN CALCIUM
     Indication: BALANCE DISORDER
     Route: 048
     Dates: start: 2003, end: 201705
  2. HYDROCHLOROTHIAZIDE. [Concomitant]
     Active Substance: HYDROCHLOROTHIAZIDE
     Dosage: 12.5 MG
     Dates: start: 2015
  3. LIPITOR [Suspect]
     Active Substance: ATORVASTATIN CALCIUM
     Indication: BALANCE DISORDER
     Route: 065
     Dates: end: 20170515
  4. ISOSORBIDE MONONITRATE. [Concomitant]
     Active Substance: ISOSORBIDE MONONITRATE
     Dosage: 120 MG
     Dates: start: 2015
  5. ASPIR 81 [Concomitant]
  6. LIPITOR [Suspect]
     Active Substance: ATORVASTATIN CALCIUM
     Indication: MUSCULAR WEAKNESS
     Route: 065
     Dates: end: 20170515
  7. LOSARTAN POTASSIUM. [Concomitant]
     Active Substance: LOSARTAN POTASSIUM
     Dosage: 50 MG
  8. LOSARTAN POTASSIUM. [Concomitant]
     Active Substance: LOSARTAN POTASSIUM
     Dosage: 100 MG
  9. NITROSTAT [Concomitant]
     Active Substance: NITROGLYCERIN
     Dosage: 4 MG
  10. RANEXA [Concomitant]
     Active Substance: RANOLAZINE
     Dosage: 1000 MG
     Dates: start: 2010
  11. CRESTOR [Suspect]
     Active Substance: ROSUVASTATIN CALCIUM
     Indication: ARTERIOSCLEROSIS
     Route: 048
     Dates: start: 2003, end: 201705
  12. CRESTOR [Suspect]
     Active Substance: ROSUVASTATIN CALCIUM
     Indication: MUSCULAR WEAKNESS
     Route: 048
     Dates: start: 2003, end: 201705
  13. CRESTOR [Suspect]
     Active Substance: ROSUVASTATIN CALCIUM
     Indication: TYPE IIA HYPERLIPIDAEMIA
     Route: 048
     Dates: start: 2003, end: 201705
  14. LIPITOR [Suspect]
     Active Substance: ATORVASTATIN CALCIUM
     Indication: TYPE IIA HYPERLIPIDAEMIA
     Route: 065
     Dates: end: 20170515
  15. LIPITOR [Suspect]
     Active Substance: ATORVASTATIN CALCIUM
     Indication: ARTERIOSCLEROSIS
     Route: 065
     Dates: end: 20170515
  16. AMLODIPINE BESYLATE. [Concomitant]
     Active Substance: AMLODIPINE BESYLATE
     Dosage: 5 MG

REACTIONS (3)
  - Muscular weakness [Recovered/Resolved]
  - Myopathy [Unknown]
  - Blood creatine phosphokinase increased [Unknown]

NARRATIVE: CASE EVENT DATE: 20170515
